FAERS Safety Report 6064615-X (Version None)
Quarter: 2009Q1

REPORT INFORMATION
  Report Type: 
  Country: None (occurrence: None)
  Receive Date: 20090203
  Receipt Date: 20090203
  Transmission Date: 20090719
  Serious: Yes (Hospitalization)
  Sender: FDA-Public Use
  Company Number: None

PATIENT
  Age: 16 Year
  Sex: Male
  Weight: 83.9154 kg

DRUGS (1)
  1. ABILIFY [Suspect]
     Dosage: 15MG 1 PER DAY PO
     Route: 048
     Dates: start: 20040101, end: 20081123

REACTIONS (3)
  - ABDOMINAL PAIN UPPER [None]
  - APPENDIX DISORDER [None]
  - GANGRENE [None]
